FAERS Safety Report 24286726 (Version 2)
Quarter: 2024Q4

REPORT INFORMATION
  Report Type: Spontaneous
  Country: HU (occurrence: HU)
  Receive Date: 20240905
  Receipt Date: 20241021
  Transmission Date: 20250115
  Serious: Yes (Hospitalization, Other)
  Sender: TEVA
  Company Number: HU-TEVA-VS-3238573

PATIENT
  Age: 7 Year
  Sex: Male

DRUGS (15)
  1. METHOTREXATE [Suspect]
     Active Substance: METHOTREXATE
     Indication: B precursor type acute leukaemia
     Dosage: MAINTENANCE TREATMENT
     Route: 065
     Dates: start: 2022
  2. METHOTREXATE [Suspect]
     Active Substance: METHOTREXATE
     Indication: B precursor type acute leukaemia
     Dosage: ALL IC BFM PROTOCOL
     Route: 065
     Dates: start: 2009
  3. DEXAMETHASONE [Suspect]
     Active Substance: DEXAMETHASONE
     Indication: B precursor type acute leukaemia
     Dosage: ALL-IC-REL V1.1 PROTOCOL
     Route: 065
  4. MERCAPTOPURINE [Concomitant]
     Active Substance: MERCAPTOPURINE
     Indication: B precursor type acute leukaemia
     Dosage: MAINTENANCE TREATMENT
     Route: 065
     Dates: start: 2022
  5. MERCAPTOPURINE [Concomitant]
     Active Substance: MERCAPTOPURINE
     Indication: B precursor type acute leukaemia
     Dosage: ALL IC BFM PROTOCOL
     Route: 065
     Dates: start: 2009
  6. VINCRISTINE [Suspect]
     Active Substance: VINCRISTINE
     Indication: B precursor type acute leukaemia
     Dosage: ALL-IC-REL V1.1 PROTOCOL
     Route: 065
  7. VINCRISTINE [Suspect]
     Active Substance: VINCRISTINE
     Indication: B precursor type acute leukaemia
     Dosage: ALL IC BFM PROTOCOL
     Route: 065
     Dates: start: 2009
  8. CYTARABINE [Suspect]
     Active Substance: CYTARABINE
     Indication: B precursor type acute leukaemia
     Dosage: ALL-IC-REL V1.1 PROTOCOL
     Route: 065
  9. CYTARABINE [Suspect]
     Active Substance: CYTARABINE
     Indication: B precursor type acute leukaemia
     Dosage: ALL IC BFM PROTOCOL
     Route: 065
     Dates: start: 2009
  10. ASPARAGINASE [Suspect]
     Active Substance: ASPARAGINASE
     Indication: B precursor type acute leukaemia
     Dosage: ALL-IC-REL V1.1 PROTOCOL
     Route: 065
  11. ASPARAGINASE [Suspect]
     Active Substance: ASPARAGINASE
     Indication: B precursor type acute leukaemia
     Dosage: ALL IC BFM PROTOCOL
     Route: 065
     Dates: start: 2009
  12. PREDNISOLONE [Concomitant]
     Active Substance: PREDNISOLONE
     Indication: B precursor type acute leukaemia
     Dosage: ALL-IC-REL V1.1 PROTOCOL
     Route: 065
  13. PREDNISOLONE [Concomitant]
     Active Substance: PREDNISOLONE
     Indication: B precursor type acute leukaemia
     Dosage: ALL IC BFM PROTOCOL
     Route: 065
     Dates: start: 2009
  14. CYCLOPHOSPHAMIDE [Suspect]
     Active Substance: CYCLOPHOSPHAMIDE
     Indication: B precursor type acute leukaemia
     Dosage: ALL IC BFM PROTOCOL
     Route: 065
     Dates: start: 2009
  15. DAUNORUBICIN [Concomitant]
     Active Substance: DAUNORUBICIN
     Indication: B precursor type acute leukaemia
     Dosage: ALL IC BFM PROTOCOL
     Route: 065
     Dates: start: 2009

REACTIONS (3)
  - Subdural haemorrhage [Unknown]
  - Cerebral atrophy [Unknown]
  - Nervous system disorder [Unknown]

NARRATIVE: CASE EVENT DATE: 20230101
